FAERS Safety Report 7801975-0 (Version None)
Quarter: 2011Q4

REPORT INFORMATION
  Report Type: 
  Country: None (occurrence: None)
  Receive Date: 20111007
  Receipt Date: 20110926
  Transmission Date: 20120403
  Serious: Yes (Hospitalization)
  Sender: FDA-Public Use
  Company Number: US-BAYER-2011-005044

PATIENT
  Age: 34 Year
  Sex: Female
  Weight: 86 kg

DRUGS (7)
  1. YAZ [Suspect]
     Indication: PREMENSTRUAL SYNDROME
  2. YAZ [Suspect]
     Indication: CONTRACEPTION
     Dosage: UNK
     Route: 048
     Dates: start: 20090501, end: 20090928
  3. LISINOPRIL [Concomitant]
     Indication: ATRIAL FIBRILLATION
     Dosage: 20 MG, QD
     Route: 048
     Dates: start: 20050101
  4. ASPIRIN [Concomitant]
     Dosage: 81 MG, QD
     Route: 048
  5. VERAPAMIL [Concomitant]
     Indication: ATRIAL FIBRILLATION
     Dosage: 180 MG, QD
     Route: 048
     Dates: start: 20050101
  6. VITAMIN D [Concomitant]
     Dosage: 1 DF, QD
     Route: 048
     Dates: start: 20070101
  7. METOPROLOL TARTRATE [Concomitant]
     Indication: ATRIAL FIBRILLATION
     Dosage: 100 MG, QD
     Route: 048
     Dates: start: 20050101

REACTIONS (5)
  - TRANSIENT ISCHAEMIC ATTACK [None]
  - PAIN [None]
  - FEAR [None]
  - EMOTIONAL DISTRESS [None]
  - ANXIETY [None]
